FAERS Safety Report 15575688 (Version 1)
Quarter: 2018Q4

REPORT INFORMATION
  Report Type: Spontaneous
  Country: US (occurrence: US)
  Receive Date: 20181101
  Receipt Date: 20181101
  Transmission Date: 20190205
  Serious: Yes (Other)
  Sender: FDA-Public Use
  Company Number: US-009507513-1810USA010093

PATIENT
  Sex: Female

DRUGS (2)
  1. IMPLANON [Suspect]
     Active Substance: ETONOGESTREL
     Indication: CONTRACEPTION
     Dosage: UNK
     Route: 065
     Dates: start: 20090129
  2. NEXPLANON [Suspect]
     Active Substance: ETONOGESTREL
     Indication: MENORRHAGIA
     Dosage: UNK
     Dates: start: 20121004

REACTIONS (24)
  - Drug hypersensitivity [Unknown]
  - Hidradenitis [Unknown]
  - Device deployment issue [Unknown]
  - Restless legs syndrome [Unknown]
  - Microalbuminuria [Unknown]
  - Incorrect product administration duration [Not Recovered/Not Resolved]
  - Urticaria [Unknown]
  - Palpitations [Unknown]
  - Tachycardia [Unknown]
  - Hypertriglyceridaemia [Unknown]
  - Hepatic steatosis [Unknown]
  - Complication of device removal [Not Recovered/Not Resolved]
  - Device deployment issue [Not Recovered/Not Resolved]
  - Gastrooesophageal reflux disease [Unknown]
  - Back pain [Unknown]
  - Paraesthesia [Unknown]
  - Type V hyperlipidaemia [Unknown]
  - Neuropathy peripheral [Unknown]
  - Ligament sprain [Unknown]
  - Complication of device removal [Not Recovered/Not Resolved]
  - Complication associated with device [Recovered/Resolved]
  - Overdose [Not Recovered/Not Resolved]
  - Diabetes mellitus inadequate control [Unknown]
  - Muscle strain [Unknown]

NARRATIVE: CASE EVENT DATE: 2009
